FAERS Safety Report 6082729-5 (Version None)
Quarter: 2009Q1

REPORT INFORMATION
  Report Type: 
  Country: None (occurrence: None)
  Receive Date: 20090218
  Receipt Date: 20090217
  Transmission Date: 20090719
  Serious: Yes (Other)
  Sender: FDA-Public Use
  Company Number: DZ-PFIZER INC-2009157325

PATIENT

DRUGS (2)
  1. ATORVASTATIN CALCIUM [Suspect]
     Indication: PROPHYLAXIS
     Dosage: 10 MG, 1X/DAY
     Route: 048
  2. INSULIN [Concomitant]
     Dosage: UNK

REACTIONS (2)
  - ABDOMINAL PAIN UPPER [None]
  - MUSCLE SPASMS [None]
